FAERS Safety Report 8896133 (Version 1)
Quarter: 2012Q4

REPORT INFORMATION
  Report Type: 
  Country: US (occurrence: US)
  Receive Date: 20121108
  Receipt Date: 20121108
  Transmission Date: 20130627
  Serious: Yes (Other)
  Sender: FDA-Public Use
  Company Number: US-ASTRAZENECA-2009UW14089

PATIENT
  Age: 56 Year
  Sex: Female
  Weight: 80.3 kg

DRUGS (10)
  1. NEXIUM [Suspect]
     Indication: GASTROOESOPHAGEAL REFLUX DISEASE
     Route: 048
     Dates: start: 2002
  2. NEXIUM [Suspect]
     Indication: GASTROOESOPHAGEAL REFLUX DISEASE
     Route: 048
     Dates: end: 201210
  3. NEXIUM [Suspect]
     Indication: GASTROOESOPHAGEAL REFLUX DISEASE
     Route: 048
  4. NEXIUM [Suspect]
     Indication: GASTROOESOPHAGEAL REFLUX DISEASE
     Route: 048
     Dates: start: 20121101
  5. PRILOSEC OTC [Suspect]
     Indication: DYSPEPSIA
     Route: 048
  6. PRILOSEC OTC [Suspect]
     Indication: DYSPEPSIA
     Route: 048
  7. CRESTOR [Suspect]
     Indication: BLOOD CHOLESTEROL INCREASED
     Route: 048
     Dates: start: 201207
  8. CRESTOR [Suspect]
     Indication: BLOOD CHOLESTEROL INCREASED
     Route: 048
     Dates: start: 201209
  9. TUMS [Suspect]
     Indication: DYSPEPSIA
     Route: 065
  10. TUMS [Suspect]
     Indication: DYSPEPSIA
     Route: 065

REACTIONS (6)
  - Disease progression [Unknown]
  - Dyspepsia [Unknown]
  - Flatulence [Unknown]
  - Dyspepsia [Unknown]
  - Intentional drug misuse [Unknown]
  - Drug ineffective [Unknown]
